FAERS Safety Report 4727268-6 (Version None)
Quarter: 2005Q3

REPORT INFORMATION
  Report Type: 
  Country: None (occurrence: None)
  Receive Date: 20050728
  Receipt Date: 20050712
  Transmission Date: 20060218
  Serious: Yes (Disabling)
  Sender: FDA-Public Use
  Company Number: AT-GLAXOSMITHKLINE-B0387614A

PATIENT
  Age: 58 Year
  Sex: Male
  Weight: 87 kg

DRUGS (2)
  1. DUTASTERIDE [Suspect]
     Indication: NEOPLASM PROPHYLAXIS
     Dosage: .5MG PER DAY
     Route: 048
     Dates: start: 20030613
  2. TICLID [Concomitant]
     Indication: GASTRITIS
     Dosage: 500MG TWICE PER DAY
     Dates: start: 20030101

REACTIONS (5)
  - CARPAL TUNNEL SYNDROME [None]
  - CERVICOBRACHIAL SYNDROME [None]
  - FORMICATION [None]
  - NEUROPATHY PERIPHERAL [None]
  - SHOULDER PAIN [None]
